FAERS Safety Report 9481705 (Version 2)
Quarter: 2013Q3

REPORT INFORMATION
  Report Type: Spontaneous
  Country: CA (occurrence: CA)
  Receive Date: 20130828
  Receipt Date: 20130828
  Transmission Date: 20140515
  Serious: Yes (Hospitalization)
  Sender: FDA-Public Use
  Company Number: CA-AMGEN-KDL216764

PATIENT
  Age: 50 Year
  Sex: Female

DRUGS (7)
  1. ENBREL [Suspect]
     Indication: RHEUMATOID ARTHRITIS
     Dosage: 50 MG, QWK
     Route: 058
     Dates: start: 20060821
  2. HYDROXYCHLOROQUINE SULFATE [Concomitant]
  3. ACTONEL [Concomitant]
  4. NABUMETONE [Concomitant]
  5. CALCIUM [Concomitant]
  6. ERGOCALCIFEROL [Concomitant]
  7. FOLIC ACID [Concomitant]

REACTIONS (4)
  - Sinusitis [Recovered/Resolved]
  - Ear infection [Recovered/Resolved]
  - Injection site pain [Unknown]
  - Injection site reaction [Unknown]
